FAERS Safety Report 6422147-0 (Version None)
Quarter: 2009Q4

REPORT INFORMATION
  Report Type: 
  Country: None (occurrence: None)
  Receive Date: 20091030
  Receipt Date: 20091020
  Transmission Date: 20100525
  Serious: Yes (Disabling)
  Sender: FDA-Public Use
  Company Number: CA-GENENTECH-292935

PATIENT
  Sex: Male

DRUGS (1)
  1. AVASTIN [Suspect]
     Indication: EYE DISORDER
     Dosage: UNK
     Route: 050
     Dates: start: 20090701, end: 20090901

REACTIONS (4)
  - EYE SWELLING [None]
  - HEADACHE [None]
  - NASAL CONGESTION [None]
  - OCULAR HYPERAEMIA [None]
